FAERS Safety Report 5666749-8 (Version None)
Quarter: 2008Q1

REPORT INFORMATION
  Report Type: 
  Country: None (occurrence: None)
  Receive Date: 20080315
  Receipt Date: 20071222
  Transmission Date: 20080703
  Serious: No
  Sender: FDA-Public Use
  Company Number: US-ABBOTT-07P-163-0431668-00

PATIENT
  Sex: Female

DRUGS (8)
  1. HUMIRA [Suspect]
     Indication: RHEUMATOID ARTHRITIS
     Route: 058
     Dates: start: 20071101
  2. FEXOFENADINE [Concomitant]
     Indication: SEASONAL ALLERGY
     Route: 048
     Dates: start: 20070101
  3. LEVOTHYROXINE SODIUM [Concomitant]
     Indication: HORMONE REPLACEMENT THERAPY
     Route: 048
     Dates: start: 20060101
  4. NABUMETONE [Concomitant]
     Indication: RHEUMATOID ARTHRITIS
     Dates: start: 20060101
  5. METHOTREXATE [Concomitant]
     Indication: RHEUMATOID ARTHRITIS
     Route: 048
     Dates: start: 20060101
  6. PREDNISONE [Concomitant]
     Indication: PAIN
     Route: 048
     Dates: start: 20070101
  7. TRAMADOL HCL [Concomitant]
     Indication: PAIN
     Route: 048
     Dates: start: 20070101
  8. PARACETAMOL [Concomitant]
     Indication: PAIN
     Route: 048
     Dates: start: 20070101

REACTIONS (4)
  - MALAISE [None]
  - PARANASAL SINUS HYPERSECRETION [None]
  - PHARYNGEAL DISORDER [None]
  - THROAT IRRITATION [None]
